FAERS Safety Report 22095994 (Version 2)
Quarter: 2023Q1

REPORT INFORMATION
  Report Type: Report from Study
  Country: CH (occurrence: CH)
  Receive Date: 20230315
  Receipt Date: 20230317
  Transmission Date: 20230417
  Serious: Yes (Death)
  Sender: FDA-Public Use
  Company Number: CH-ABBVIE-4341169

PATIENT
  Age: 84 Year
  Sex: Female

DRUGS (12)
  1. CARBIDOPA\LEVODOPA [Suspect]
     Active Substance: CARBIDOPA\LEVODOPA
     Indication: Parkinson^s disease
     Dosage: MD 5.0ML, CRD 5.5 ML/H, ED 1.5ML; CRN 3.0 ML/H
     Route: 050
     Dates: start: 20230116, end: 20230120
  2. CARBIDOPA\LEVODOPA [Suspect]
     Active Substance: CARBIDOPA\LEVODOPA
     Dosage: 1 CASSETTE/DAY
     Route: 050
     Dates: start: 202211, end: 202303
  3. CARBIDOPA\LEVODOPA [Suspect]
     Active Substance: CARBIDOPA\LEVODOPA
     Dosage: MD 5.0ML, CRD 5.8 ML/H, ED 1.5ML; CRN 3.0 ML/H
     Route: 050
     Dates: start: 20230120, end: 20230130
  4. CARBIDOPA\LEVODOPA [Suspect]
     Active Substance: CARBIDOPA\LEVODOPA
     Dosage: MD 9.5 ML, CRD 4.3 ML/H, ED 1.0ML
     Route: 050
     Dates: start: 20221102, end: 20221103
  5. CARBIDOPA\LEVODOPA [Suspect]
     Active Substance: CARBIDOPA\LEVODOPA
     Dosage: MD 6.5 ML, CRD 5.6 ML/H, ED 1.5ML; CRN 3.1 ML/H
     Route: 050
     Dates: start: 20230130, end: 20230311
  6. CARBIDOPA\LEVODOPA [Suspect]
     Active Substance: CARBIDOPA\LEVODOPA
     Dosage: 1 CASSETTE/DAY
     Route: 050
     Dates: start: 20221031, end: 20230311
  7. CARBIDOPA\LEVODOPA [Suspect]
     Active Substance: CARBIDOPA\LEVODOPA
     Dosage: MD 6.5 ML, CRD 5.3 ML/H, ED 1.5ML
     Route: 050
     Dates: start: 20221216, end: 20230111
  8. CARBIDOPA\LEVODOPA [Suspect]
     Active Substance: CARBIDOPA\LEVODOPA
     Dosage: MD 6.5 ML, CRD 4.7 ML/H, ED 1.0ML
     Route: 050
     Dates: start: 20221031, end: 20221101
  9. CARBIDOPA\LEVODOPA [Suspect]
     Active Substance: CARBIDOPA\LEVODOPA
     Dosage: MD 5.0ML, CRD 5.3 ML/H, ED 1.5ML; CRN 3.0 ML/H
     Route: 050
     Dates: start: 20230111, end: 20230116
  10. CARBIDOPA\LEVODOPA [Suspect]
     Active Substance: CARBIDOPA\LEVODOPA
     Dosage: MD 6.5 ML, CRD 4.3 ML/H, ED 1.0ML
     Route: 050
     Dates: start: 20221101, end: 20221102
  11. CARBIDOPA\LEVODOPA [Suspect]
     Active Substance: CARBIDOPA\LEVODOPA
     Dosage: MD 9.5 ML, CRD 4.7 ML/H, ED 1.0ML
     Route: 050
     Dates: start: 20221103, end: 20221107
  12. CARBIDOPA\LEVODOPA [Suspect]
     Active Substance: CARBIDOPA\LEVODOPA
     Dosage: MD 9.5 ML, CRD 4.7 ML/H, ED 1.5ML
     Route: 050
     Dates: start: 20221107, end: 20221216

REACTIONS (3)
  - Death [Fatal]
  - Femur fracture [Unknown]
  - Asthenia [Not Recovered/Not Resolved]

NARRATIVE: CASE EVENT DATE: 20230301
